FAERS Safety Report 7481231-3 (Version None)
Quarter: 2011Q2

REPORT INFORMATION
  Report Type: 
  Country: None (occurrence: None)
  Receive Date: 20110516
  Receipt Date: 20110502
  Transmission Date: 20111010
  Serious: Yes (Hospitalization)
  Sender: FDA-Public Use
  Company Number: PHHY2011NL34289

PATIENT
  Sex: Male

DRUGS (13)
  1. LOPERAMIDE [Concomitant]
     Dosage: AS REQUIRED
  2. TARCEVA [Concomitant]
  3. ZOMETA [Suspect]
     Indication: METASTASES TO BONE
     Dosage: 4MG/5ML ONCE PER 21 DAYS (20 MINUTES INTRAVENOUS INFUSION)
     Route: 042
     Dates: start: 20110222
  4. DEXAMETHASONE [Concomitant]
  5. ZOMETA [Suspect]
     Dosage: 4MG/5ML ONCE PER 21 DAYS
     Route: 042
     Dates: start: 20110406
  6. CALCICHEW D3 [Concomitant]
  7. FOLIC ACID [Concomitant]
  8. PERINDOPRIL ERBUMINE [Concomitant]
     Dosage: 4 UNK, UNK
  9. ZOMETA [Suspect]
     Dosage: 4MG/5ML ONCE PER 21 DAYS
     Route: 042
     Dates: start: 20110315
  10. CARBASALATE CALCIUM [Concomitant]
     Dosage: 100 UNK, UNK
  11. SOTALOL HCL [Concomitant]
     Dosage: 80 UNK, UNK
  12. AMLODIPINE BESYLATE [Concomitant]
     Dosage: 5 UNK, UNK
  13. SIMVASTATIN [Concomitant]
     Dosage: 40 UNK, UNK

REACTIONS (3)
  - CHEST DISCOMFORT [None]
  - CYSTITIS [None]
  - DEHYDRATION [None]
